FAERS Safety Report 7523975-0 (Version None)
Quarter: 2011Q2

REPORT INFORMATION
  Report Type: 
  Country: None (occurrence: None)
  Receive Date: 20110603
  Receipt Date: 20110520
  Transmission Date: 20111010
  Serious: Yes (Hospitalization, Other)
  Sender: FDA-Public Use
  Company Number: GB-AMGEN-IRLSP2011026263

PATIENT
  Age: 59 Year
  Sex: Male

DRUGS (1)
  1. ARANESP [Suspect]
     Indication: ANAEMIA OF MALIGNANT DISEASE
     Dosage: UNK, Q3WK

REACTIONS (10)
  - VISUAL IMPAIRMENT [None]
  - CHEST PAIN [None]
  - DYSPNOEA [None]
  - MICTURITION DISORDER [None]
  - HOSPITALISATION [None]
  - VISUAL ACUITY REDUCED [None]
  - CONVULSION [None]
  - MALAISE [None]
  - PARAESTHESIA [None]
  - LISTLESS [None]
